FAERS Safety Report 11718478 (Version 2)
Quarter: 2015Q4

REPORT INFORMATION
  Report Type: Other
  Country: GB (occurrence: GB)
  Receive Date: 20151110
  Receipt Date: 20151207
  Transmission Date: 20160304
  Serious: Yes (Death, Hospitalization, Disabling)
  Sender: FDA-Public Use
  Company Number: GB-ASTELLAS-2015US041818

PATIENT
  Age: 61 Year
  Sex: Female

DRUGS (1)
  1. MIRABEGRON [Suspect]
     Active Substance: MIRABEGRON
     Indication: URINARY TRACT DISORDER
     Route: 048
     Dates: start: 20150519, end: 20151014

REACTIONS (1)
  - Cerebral haemorrhage [Fatal]
